FAERS Safety Report 23651809 (Version 1)
Quarter: 2024Q1

REPORT INFORMATION
  Report Type: Spontaneous
  Country: FR (occurrence: FR)
  Receive Date: 20240320
  Receipt Date: 20240320
  Transmission Date: 20240409
  Serious: Yes (Other)
  Sender: FDA-Public Use
  Company Number: FR-002147023-NVSC2024FR057513

PATIENT
  Age: 81 Year
  Sex: Female

DRUGS (5)
  1. LUTATHERA [Suspect]
     Active Substance: LUTETIUM OXODOTREOTIDE LU-177
     Indication: Small intestine neuroendocrine tumour
     Dosage: UNK ONCE CYCLE 1
     Route: 065
     Dates: start: 20180821, end: 20180821
  2. LUTATHERA [Suspect]
     Active Substance: LUTETIUM OXODOTREOTIDE LU-177
     Indication: Metastases to pelvis
     Dosage: UNK ONCE CYCLE 2
     Route: 065
     Dates: start: 20181009, end: 20181009
  3. LUTATHERA [Suspect]
     Active Substance: LUTETIUM OXODOTREOTIDE LU-177
     Dosage: UNK ONCE CYCLE 3
     Route: 065
     Dates: start: 20181212, end: 20181212
  4. LUTATHERA [Suspect]
     Active Substance: LUTETIUM OXODOTREOTIDE LU-177
     Dosage: UNK ONCE CYCLE 4
     Route: 065
     Dates: start: 20190206, end: 20190206
  5. LUTATHERA [Suspect]
     Active Substance: LUTETIUM OXODOTREOTIDE LU-177
     Dosage: UNK ONCE CYCLE 5
     Route: 065
     Dates: start: 20240312, end: 20240312

REACTIONS (4)
  - Small intestine neuroendocrine tumour [Unknown]
  - Malignant neoplasm progression [Unknown]
  - Metastases to pelvis [Unknown]
  - Off label use [Unknown]
